FAERS Safety Report 19854381 (Version 1)
Quarter: 2021Q3

REPORT INFORMATION
  Report Type: Spontaneous
  Country: CA (occurrence: CA)
  Receive Date: 20210920
  Receipt Date: 20210920
  Transmission Date: 20211014
  Serious: Yes (Hospitalization)
  Sender: FDA-Public Use
  Company Number: CA-ACCORD-238951

PATIENT
  Age: 47 Year
  Sex: Female

DRUGS (8)
  1. SERTRALINE [Suspect]
     Active Substance: SERTRALINE HYDROCHLORIDE
     Indication: PRODUCT USED FOR UNKNOWN INDICATION
     Route: 048
  2. RIZATRIPTAN. [Concomitant]
     Active Substance: RIZATRIPTAN
  3. XELJANZ [Suspect]
     Active Substance: TOFACITINIB CITRATE
     Indication: RHEUMATOID ARTHRITIS
     Dosage: 2 EVERY 1 DAYS
     Route: 048
  4. GABAPENTIN. [Suspect]
     Active Substance: GABAPENTIN
     Indication: NEURALGIA
  5. TOPIRAMATE. [Concomitant]
     Active Substance: TOPIRAMATE
  6. MYRBETRIQ [Concomitant]
     Active Substance: MIRABEGRON
     Route: 048
  7. QUETIAPINE. [Suspect]
     Active Substance: QUETIAPINE
     Indication: PRODUCT USED FOR UNKNOWN INDICATION
     Route: 048
  8. DEXILANT [Concomitant]
     Active Substance: DEXLANSOPRAZOLE
     Route: 048

REACTIONS (10)
  - Memory impairment [Unknown]
  - Accident [Unknown]
  - Post-traumatic stress disorder [Unknown]
  - Migraine [Unknown]
  - Dizziness [Unknown]
  - Depression [Unknown]
  - Back pain [Unknown]
  - Neck pain [Unknown]
  - Loss of consciousness [Unknown]
  - Suicide attempt [Unknown]
